FAERS Safety Report 15279640 (Version 1)
Quarter: 2018Q3

REPORT INFORMATION
  Report Type: Spontaneous
  Country: US (occurrence: US)
  Receive Date: 20180815
  Receipt Date: 20180815
  Transmission Date: 20181010
  Serious: No
  Sender: FDA-Public Use
  Company Number: US-PFIZER INC-2018310959

PATIENT
  Age: 51 Year
  Sex: Female
  Weight: 80.74 kg

DRUGS (1)
  1. LYRICA [Suspect]
     Active Substance: PREGABALIN
     Indication: MULTIPLE SCLEROSIS
     Dosage: 300 MG, 4X/DAY
     Route: 048

REACTIONS (4)
  - Prescribed overdose [Unknown]
  - Pain [Unknown]
  - Product use in unapproved indication [Unknown]
  - Gait disturbance [Unknown]
